FAERS Safety Report 23417100 (Version 1)
Quarter: 2024Q1

REPORT INFORMATION
  Report Type: Report from Study
  Country: PE (occurrence: PE)
  Receive Date: 20240118
  Receipt Date: 20240118
  Transmission Date: 20240410
  Serious: Yes (Other)
  Sender: FDA-Public Use
  Company Number: PE-GILEAD-2024-0658749

PATIENT
  Age: 73 Year
  Sex: Female

DRUGS (2)
  1. REMDESIVIR [Suspect]
     Active Substance: REMDESIVIR
     Indication: COVID-19
     Dosage: UNK
     Route: 065
  2. IVERMECTIN [Concomitant]
     Active Substance: IVERMECTIN
     Indication: COVID-19
     Dosage: 18 MG, QD

REACTIONS (2)
  - Cholestasis [Recovered/Resolved]
  - Hepatocellular injury [Recovered/Resolved]
